FAERS Safety Report 6029344-7 (Version None)
Quarter: 2009Q1

REPORT INFORMATION
  Report Type: 
  Country: None (occurrence: None)
  Receive Date: 20090102
  Receipt Date: 20081211
  Transmission Date: 20090719
  Serious: Yes (Hospitalization)
  Sender: FDA-Public Use
  Company Number: 20085930

PATIENT
  Sex: Male

DRUGS (1)
  1. LIORESAL [Suspect]
     Indication: MUSCLE SPASTICITY
     Dosage: 360.5 MCG, DAILY; INTRATHECAL
     Route: 037

REACTIONS (6)
  - DRUG INEFFECTIVE [None]
  - DRUG WITHDRAWAL SYNDROME [None]
  - FALL [None]
  - INCISION SITE COMPLICATION [None]
  - INTRACRANIAL HYPOTENSION [None]
  - PRURITUS [None]
